FAERS Safety Report 4440541-4 (Version None)
Quarter: 2004Q3

REPORT INFORMATION
  Report Type: 
  Country: None (occurrence: None)
  Receive Date: 20040831
  Receipt Date: 20040402
  Transmission Date: 20050211
  Serious: Yes (Hospitalization)
  Sender: FDA-Public Use
  Company Number: US012952

PATIENT
  Age: 38 Year
  Sex: Female
  Weight: 81.6475 kg

DRUGS (2)
  1. GABITRIL [Suspect]
     Indication: ANXIETY
     Dosage: 240 MG ONCE ORAL
     Route: 048
     Dates: start: 20040401
  2. GABITRIL [Suspect]
     Indication: DEPRESSION
     Dosage: 240 MG ONCE ORAL
     Route: 048
     Dates: start: 20040401

REACTIONS (3)
  - CONVULSION [None]
  - INTENTIONAL OVERDOSE [None]
  - SUICIDE ATTEMPT [None]
